FAERS Safety Report 7018611-6 (Version None)
Quarter: 2010Q3

REPORT INFORMATION
  Report Type: 
  Country: None (occurrence: None)
  Receive Date: 20100922
  Receipt Date: 20100907
  Transmission Date: 20110219
  Serious: Yes (Life-Threatening, Hospitalization, Other)
  Sender: FDA-Public Use
  Company Number: 2009000340

PATIENT
  Age: 83 Year
  Sex: Male

DRUGS (3)
  1. ERLOTINIB HYDROCHLORIDE [Suspect]
     Indication: PANCREATIC CARCINOMA METASTATIC
     Dosage: (100 MG, QD), ORAL
     Route: 048
     Dates: start: 20081223
  2. GEMCITABINE [Suspect]
     Indication: PANCREATIC CARCINOMA METASTATIC
     Dosage: (1320 MG, QW), INTRAVENOUS
     Route: 042
     Dates: start: 20081223
  3. LAXATIVE NOS [Suspect]
     Indication: PRODUCT USED FOR UNKNOWN INDICATION

REACTIONS (7)
  - ANAEMIA [None]
  - BLOOD CALCIUM DECREASED [None]
  - DIARRHOEA [None]
  - HYPOTENSION [None]
  - PLATELET COUNT DECREASED [None]
  - PNEUMONITIS [None]
  - TROPONIN I INCREASED [None]
